FAERS Safety Report 5922645-X (Version None)
Quarter: 2008Q4

REPORT INFORMATION
  Report Type: 
  Country: None (occurrence: None)
  Receive Date: 20081014
  Receipt Date: 20080924
  Transmission Date: 20090506
  Serious: Yes (Hospitalization)
  Sender: FDA-Public Use
  Company Number: US023496

PATIENT
  Age: 42 Year
  Sex: Female
  Weight: 55.3388 kg

DRUGS (30)
  1. ACTIQ [Suspect]
     Indication: FIBROMYALGIA
     Dosage: 800 UG PRN BUCCAL
     Route: 002
     Dates: start: 20040727, end: 20040908
  2. ACTIQ [Suspect]
     Indication: HEADACHE
     Dosage: 800 UG PRN BUCCAL
     Route: 002
     Dates: start: 20040727, end: 20040908
  3. ACTIQ [Suspect]
     Indication: TRIGEMINAL NEURALGIA
     Dosage: 800 UG PRN BUCCAL
     Route: 002
     Dates: start: 20040727, end: 20040908
  4. ACTIQ [Suspect]
     Indication: FIBROMYALGIA
     Dosage: 2400 UG 800UG LOZENGE IN AM; TWO 800UG LOZENGES IN PM DAILY BUCCAL
     Route: 002
     Dates: start: 20040909
  5. ACTIQ [Suspect]
     Indication: HEADACHE
     Dosage: 2400 UG 800UG LOZENGE IN AM; TWO 800UG LOZENGES IN PM DAILY BUCCAL
     Route: 002
     Dates: start: 20040909
  6. ACTIQ [Suspect]
     Indication: TRIGEMINAL NEURALGIA
     Dosage: 2400 UG 800UG LOZENGE IN AM; TWO 800UG LOZENGES IN PM DAILY BUCCAL
     Route: 002
     Dates: start: 20040909
  7. ACTIQ [Suspect]
     Indication: FIBROMYALGIA
     Dosage: 4000 UG 800UG IN AM; 1600UG IN PM; 800 UG BID PRN DAILY BUCCAL
     Route: 002
     Dates: end: 20050720
  8. ACTIQ [Suspect]
     Indication: HEADACHE
     Dosage: 4000 UG 800UG IN AM; 1600UG IN PM; 800 UG BID PRN DAILY BUCCAL
     Route: 002
     Dates: end: 20050720
  9. ACTIQ [Suspect]
     Indication: TRIGEMINAL NEURALGIA
     Dosage: 4000 UG 800UG IN AM; 1600UG IN PM; 800 UG BID PRN DAILY BUCCAL
     Route: 002
     Dates: end: 20050720
  10. ACTIQ [Suspect]
     Indication: FIBROMYALGIA
     Dosage: 4800 UG 800UG IN AM; 1600UG IN PM; 800UG TID PRN DAILY BUCCAL
     Route: 002
     Dates: start: 20050721
  11. ACTIQ [Suspect]
     Indication: HEADACHE
     Dosage: 4800 UG 800UG IN AM; 1600UG IN PM; 800UG TID PRN DAILY BUCCAL
     Route: 002
     Dates: start: 20050721
  12. ACTIQ [Suspect]
     Indication: TRIGEMINAL NEURALGIA
     Dosage: 4800 UG 800UG IN AM; 1600UG IN PM; 800UG TID PRN DAILY BUCCAL
     Route: 002
     Dates: start: 20050721
  13. ACTIQ [Suspect]
     Indication: FIBROMYALGIA
     Dosage: 600 UG TID BUCCAL
     Route: 002
     Dates: end: 20060710
  14. ACTIQ [Suspect]
     Indication: TRIGEMINAL NEURALGIA
     Dosage: 600 UG TID BUCCAL
     Route: 002
     Dates: end: 20060710
  15. ACTIQ [Suspect]
     Indication: HEADACHE
     Dosage: 800 UG TID BUCCAL
     Route: 002
     Dates: start: 20060711
  16. ACTIQ [Suspect]
     Indication: TRIGEMINAL NEURALGIA
     Dosage: 800 UG TID BUCCAL
     Route: 002
     Dates: start: 20060711
  17. ACTIQ [Suspect]
     Indication: HEADACHE
     Dosage: 600 UG QID BUCCAL
     Route: 002
     Dates: end: 20070320
  18. ACTIQ [Suspect]
     Indication: TRIGEMINAL NEURALGIA
     Dosage: 600 UG QID BUCCAL
     Route: 002
     Dates: end: 20070320
  19. XANAX [Suspect]
     Dosage: 3 TAB/CAP DAILY ORAL
     Route: 048
     Dates: start: 20030501
  20. XANAX [Suspect]
     Dosage: 3 MG DAILY ORAL
     Route: 048
     Dates: end: 20050403
  21. XANAX [Suspect]
     Dosage: 1 UG QID ORAL
     Route: 048
     Dates: start: 20050404
  22. XANAX [Suspect]
     Dosage: 2 MG TID ORAL
     Route: 048
  23. XANAX [Suspect]
     Dosage: 4 MG QID ORAL
     Route: 048
     Dates: end: 20070320
  24. DILAUDID [Suspect]
     Indication: PAIN
     Dosage: 2 MG Q4HR ORAL
     Route: 048
  25. DILAUDID [Suspect]
     Indication: PAIN
     Dosage: PRN ORAL
     Route: 048
     Dates: end: 20070301
  26. AMBIEN [Suspect]
     Indication: PAIN
     Dosage: 12.5 MG QHS ORAL
     Route: 048
     Dates: end: 20070319
  27. DEMEROL [Suspect]
     Indication: PAIN
     Dosage: 50 MG EVERY 6 HOURS AS NEEDED ORAL
     Route: 048
     Dates: end: 20070301
  28. FENTORA [Concomitant]
  29. CYMBALTA [Concomitant]
  30. ZANAFLEX [Concomitant]

REACTIONS (8)
  - DENTAL CARIES [None]
  - MEDICATION ERROR [None]
  - NAUSEA [None]
  - PANIC ATTACK [None]
  - SLEEP DISORDER [None]
  - SUBSTANCE ABUSE [None]
  - TREMOR [None]
  - WITHDRAWAL SYNDROME [None]
